FAERS Safety Report 18331998 (Version 23)
Quarter: 2025Q2

REPORT INFORMATION
  Report Type: Report from Study
  Country: US (occurrence: US)
  Receive Date: 20201001
  Receipt Date: 20250604
  Transmission Date: 20250717
  Serious: Yes (Hospitalization, Other)
  Sender: TAKEDA
  Company Number: US-SHIRE-US202031748

PATIENT
  Age: 37 Year
  Sex: Female
  Weight: 47.2 kg

DRUGS (39)
  1. HUMAN IMMUNOGLOBULIN G [Suspect]
     Active Substance: HUMAN IMMUNOGLOBULIN G
     Indication: Immunodeficiency common variable
     Dosage: 40 GRAM, Q3WEEKS
     Dates: start: 20190312
  2. HUMAN IMMUNOGLOBULIN G [Suspect]
     Active Substance: HUMAN IMMUNOGLOBULIN G
     Indication: Primary immunodeficiency syndrome
     Dosage: 55 GRAM, Q3WEEKS
     Dates: start: 20210316
  3. HUMAN IMMUNOGLOBULIN G [Suspect]
     Active Substance: HUMAN IMMUNOGLOBULIN G
  4. GAMMAGARD LIQUID [Suspect]
     Active Substance: HUMAN IMMUNOGLOBULIN G
     Indication: Immunodeficiency common variable
     Dosage: 50 GRAM, Q3WEEKS
     Dates: start: 20190312
  5. GAMMAGARD LIQUID [Suspect]
     Active Substance: HUMAN IMMUNOGLOBULIN G
     Indication: Gastroenteritis norovirus
     Dosage: 55 GRAM, Q3WEEKS
  6. GAMMAGARD LIQUID [Suspect]
     Active Substance: HUMAN IMMUNOGLOBULIN G
  7. GAMMAGARD LIQUID [Suspect]
     Active Substance: HUMAN IMMUNOGLOBULIN G
     Dosage: 60 GRAM, Q3WEEKS
  8. GAMMAGARD LIQUID [Suspect]
     Active Substance: HUMAN IMMUNOGLOBULIN G
     Dosage: 50 GRAM, Q3WEEKS
     Dates: start: 20210316
  9. DIPHENHYDRAMINE [Concomitant]
     Active Substance: DIPHENHYDRAMINE
     Indication: Product used for unknown indication
  10. VITAMIN D3 [Concomitant]
     Active Substance: CHOLECALCIFEROL
     Indication: Product used for unknown indication
  11. SODIUM CHLORIDE [Concomitant]
     Active Substance: SODIUM CHLORIDE
     Indication: Product used for unknown indication
  12. EPINEPHRINE [Concomitant]
     Active Substance: EPINEPHRINE
     Indication: Product used for unknown indication
  13. ZYRTEC [Concomitant]
     Active Substance: CETIRIZINE HYDROCHLORIDE
     Indication: Product used for unknown indication
  14. ACETAMINOPHEN [Concomitant]
     Active Substance: ACETAMINOPHEN
     Indication: Product used for unknown indication
  15. TRIAMCINOLONE ACETONIDE [Concomitant]
     Active Substance: TRIAMCINOLONE ACETONIDE
     Indication: Product used for unknown indication
  16. ELIDEL [Concomitant]
     Active Substance: PIMECROLIMUS
     Indication: Product used for unknown indication
  17. CALCIUM [Concomitant]
     Active Substance: CALCIUM
     Indication: Product used for unknown indication
  18. PROMACTA [Concomitant]
     Active Substance: ELTROMBOPAG OLAMINE
     Indication: Product used for unknown indication
  19. FAMOTIDINE [Concomitant]
     Active Substance: FAMOTIDINE
     Indication: Product used for unknown indication
  20. AMOXICILLIN [Concomitant]
     Active Substance: AMOXICILLIN
     Indication: Product used for unknown indication
  21. BACTRIM [Concomitant]
     Active Substance: SULFAMETHOXAZOLE\TRIMETHOPRIM
     Indication: Product used for unknown indication
  22. TERBINAFINE [Concomitant]
     Active Substance: TERBINAFINE
     Indication: Product used for unknown indication
  23. LEVAQUIN [Concomitant]
     Active Substance: LEVOFLOXACIN
     Indication: Product used for unknown indication
  24. XOLAIR [Concomitant]
     Active Substance: OMALIZUMAB
     Indication: Product used for unknown indication
  25. SODIUM CHLORIDE [Concomitant]
     Active Substance: SODIUM CHLORIDE
     Indication: Diarrhoea
  26. DIPHENHYDRAMINE HYDROCHLORIDE [Concomitant]
     Active Substance: DIPHENHYDRAMINE HYDROCHLORIDE
     Indication: Product used for unknown indication
  27. POTASSIUM [Concomitant]
     Active Substance: POTASSIUM
  28. LOPERAMIDE [Concomitant]
     Active Substance: LOPERAMIDE
  29. MAGNESIUM [Concomitant]
     Active Substance: MAGNESIUM
  30. VITAMIN C [Concomitant]
     Active Substance: ASCORBIC ACID
  31. LOMOTIL [Concomitant]
     Active Substance: ATROPINE SULFATE\DIPHENOXYLATE HYDROCHLORIDE
  32. OPIUM TINCTURE [Concomitant]
     Active Substance: MORPHINE
  33. BUDESONIDE [Concomitant]
     Active Substance: BUDESONIDE
  34. BECLOMETHASONE [Concomitant]
     Active Substance: BECLOMETHASONE
  35. ONDANSETRON HYDROCHLORIDE [Concomitant]
     Active Substance: ONDANSETRON HYDROCHLORIDE
  36. PANTOPRAZOLE SODIUM [Concomitant]
     Active Substance: PANTOPRAZOLE SODIUM
  37. LEXAPRO [Concomitant]
     Active Substance: ESCITALOPRAM OXALATE
  38. DAPSONE [Concomitant]
     Active Substance: DAPSONE
  39. ALINIA [Concomitant]
     Active Substance: NITAZOXANIDE

REACTIONS (23)
  - Haemorrhage [Unknown]
  - Norovirus infection [Unknown]
  - Vascular device infection [Unknown]
  - Gastrointestinal viral infection [Unknown]
  - Gastroenteritis norovirus [Unknown]
  - Pseudomonas infection [Unknown]
  - Cholecystitis infective [Unknown]
  - Pneumocystis jirovecii pneumonia [Unknown]
  - Aspergillus infection [Unknown]
  - Pneumonia fungal [Unknown]
  - Pneumonia [Unknown]
  - Diarrhoea [Unknown]
  - Gastrointestinal infection [Unknown]
  - Insurance issue [Unknown]
  - Food poisoning [Unknown]
  - Sinusitis [Unknown]
  - Decreased immune responsiveness [Unknown]
  - Upper respiratory tract infection [Unknown]
  - Post procedural infection [Unknown]
  - Infection [Unknown]
  - Fatigue [Unknown]
  - Headache [Unknown]
  - Nausea [Unknown]

NARRATIVE: CASE EVENT DATE: 20240926
